FAERS Safety Report 10989017 (Version 1)
Quarter: 2015Q2

REPORT INFORMATION
  Report Type: Spontaneous
  Country: US (occurrence: US)
  Receive Date: 20150405
  Receipt Date: 20150405
  Transmission Date: 20150821
  Serious: Yes (Death)
  Sender: FDA-Public Use
  Company Number: US-ROCHE-1560499

PATIENT
  Age: 85 Year
  Sex: Female

DRUGS (1)
  1. XELODA [Suspect]
     Active Substance: CAPECITABINE
     Indication: PANCREATIC CARCINOMA
     Dosage: 2 TABS BID X 14 DAYS ON
     Route: 048
     Dates: start: 20131010, end: 20150327

REACTIONS (1)
  - Death [Fatal]

NARRATIVE: CASE EVENT DATE: 20150327
